FAERS Safety Report 5298476-3 (Version None)
Quarter: 2007Q2

REPORT INFORMATION
  Report Type: 
  Country: None (occurrence: None)
  Receive Date: 20070409
  Receipt Date: 20070329
  Transmission Date: 20071010
  Serious: Yes (Hospitalization)
  Sender: FDA-Public Use
  Company Number: MEDI-0005519

PATIENT
  Age: 51 Year
  Sex: Male
  Weight: 83.0083 kg

DRUGS (7)
  1. ETHYOL [Suspect]
     Indication: PROPHYLAXIS
     Dosage: 400 MG, 1 IN 1 D, SUBCUTANEOUS
     Route: 058
     Dates: start: 20070309, end: 20070319
  2. RADIATION THERAPY [Concomitant]
  3. CISPLATIN [Concomitant]
  4. LASIX [Concomitant]
  5. DOLASETRON (DOLASETRON) [Concomitant]
  6. DECADRON [Concomitant]
  7. ZOFRAN [Concomitant]

REACTIONS (15)
  - CANDIDIASIS [None]
  - CHILLS [None]
  - COMPUTERISED TOMOGRAM ABNORMAL [None]
  - DRUG HYPERSENSITIVITY [None]
  - DRY THROAT [None]
  - EYE DISCHARGE [None]
  - HAEMOGLOBIN DECREASED [None]
  - HYPOAESTHESIA FACIAL [None]
  - INJECTION SITE ERYTHEMA [None]
  - MUCOSAL INFLAMMATION [None]
  - OCULAR HYPERAEMIA [None]
  - PHARYNGOLARYNGEAL PAIN [None]
  - PYREXIA [None]
  - TREMOR [None]
  - WHITE BLOOD CELL COUNT DECREASED [None]
